FAERS Safety Report 4589284-7 (Version None)
Quarter: 2005Q1

REPORT INFORMATION
  Report Type: 
  Country: None (occurrence: None)
  Receive Date: 20050216
  Receipt Date: 20050208
  Transmission Date: 20050727
  Serious: Yes (Death)
  Sender: FDA-Public Use
  Company Number: USA-2005-0018816

PATIENT
  Sex: Female

DRUGS (6)
  1. OXYCONTIN [Suspect]
     Dosage: 80 MG, TID
  2. LORCET-HD [Suspect]
     Indication: PAIN
  3. NEURONTIN [Suspect]
     Dosage: 400 MG, TID
  4. SOMA [Suspect]
  5. TRANXENE [Suspect]
     Dosage: 7.5 MG, BID
  6. TRAZODONE HCL [Suspect]
     Dosage: 300 MG, HS

REACTIONS (1)
  - DRUG TOLERANCE INCREASED [None]
